FAERS Safety Report 5132514-3 (Version None)
Quarter: 2006Q4

REPORT INFORMATION
  Report Type: 
  Country: None (occurrence: None)
  Receive Date: 20061023
  Receipt Date: 20060120
  Transmission Date: 20070319
  Serious: Yes (Life-Threatening, Hospitalization)
  Sender: FDA-Public Use
  Company Number: FR-ROCHE-432970

PATIENT
  Sex: Male
  Weight: 0.6 kg

DRUGS (3)
  1. NICARDIPINE HYDROCHLORIDE [Suspect]
     Indication: DRUG USE FOR UNKNOWN INDICATION
     Route: 064
  2. TENORMIN [Suspect]
     Indication: DRUG USE FOR UNKNOWN INDICATION
     Route: 064
  3. ALDOMET [Suspect]
     Indication: HYPERTENSION

REACTIONS (17)
  - ACIDOSIS [None]
  - ANGIOPATHY [None]
  - CAESAREAN SECTION [None]
  - CIRCULATORY COLLAPSE [None]
  - FOETAL CARDIAC DISORDER [None]
  - FOETAL DISTRESS SYNDROME [None]
  - FOETAL GROWTH RETARDATION [None]
  - HYPONATRAEMIA [None]
  - HYPOTENSION [None]
  - HYPOXIA [None]
  - INTUBATION [None]
  - JAUNDICE CHOLESTATIC [None]
  - NEONATAL RESPIRATORY DISTRESS SYNDROME [None]
  - PREGNANCY [None]
  - PREMATURE BABY [None]
  - PULMONARY HAEMORRHAGE [None]
  - RENAL FAILURE ACUTE [None]
